FAERS Safety Report 20749781 (Version 1)
Quarter: 2022Q2

REPORT INFORMATION
  Report Type: Spontaneous
  Country: US (occurrence: None)
  Receive Date: 20220425
  Receipt Date: 20220425
  Transmission Date: 20220721
  Serious: Yes (Other)
  Sender: FDA-Public Use
  Company Number: None

PATIENT
  Age: 49 Year
  Sex: Female
  Weight: 54.45 kg

DRUGS (2)
  1. MESALAMINE EXTENDED-RELEASE [Suspect]
     Active Substance: MESALAMINE
     Indication: Colitis ulcerative
     Dosage: OTHER QUANTITY : 1 CAPSULE(S);?FREQUENCY : TWICE A DAY;?
     Route: 048
     Dates: start: 20220422
  2. PROBIOTICS NOS [Concomitant]
     Active Substance: PROBIOTICS NOS

REACTIONS (1)
  - Depression [None]

NARRATIVE: CASE EVENT DATE: 20220423
